FAERS Safety Report 7180256-5 (Version None)
Quarter: 2010Q4

REPORT INFORMATION
  Report Type: 
  Country: None (occurrence: None)
  Receive Date: 20101221
  Receipt Date: 20101214
  Transmission Date: 20110411
  Serious: Yes (Other)
  Sender: FDA-Public Use
  Company Number: US-MYLANLABS-2010S1022704

PATIENT
  Age: 75 Year
  Sex: Female
  Weight: 70.31 kg

DRUGS (6)
  1. FENTANYL-100 [Suspect]
     Indication: FIBROMYALGIA
     Dosage: CHANGED Q 72 H
     Route: 062
     Dates: start: 20070101
  2. DIAZEPAM [Suspect]
     Indication: CONVULSION
     Route: 048
  3. CLONAZEPAM [Suspect]
     Indication: CONVULSION
     Route: 048
  4. IBUPROFEN [Concomitant]
  5. EFFEXOR XR [Concomitant]
     Indication: ANTIDEPRESSANT THERAPY
  6. LEVOTHYROXINE [Concomitant]
     Indication: HYPOTHYROIDISM

REACTIONS (5)
  - CONVULSION [None]
  - DRUG INEFFECTIVE [None]
  - NERVOUSNESS [None]
  - PAIN [None]
  - TREMOR [None]
